FAERS Safety Report 7238520-7 (Version None)
Quarter: 2011Q1

REPORT INFORMATION
  Report Type: 
  Country: None (occurrence: None)
  Receive Date: 20110121
  Receipt Date: 20110117
  Transmission Date: 20110831
  Serious: No
  Sender: FDA-Public Use
  Company Number: JP-JNJFOC-20101201186

PATIENT
  Age: 46 Year
  Sex: Male
  Weight: 68 kg

DRUGS (20)
  1. CALONAL [Concomitant]
     Indication: PAIN
     Route: 048
  2. GABAPENTIN [Concomitant]
     Indication: PAIN
     Route: 048
  3. GASTER D [Concomitant]
     Indication: PAIN
     Route: 048
  4. NEO VITACAIN [Concomitant]
     Route: 065
  5. NEUROTROPIN [Concomitant]
     Indication: PAIN
     Route: 048
  6. MEXITIL [Concomitant]
     Route: 065
  7. NEO VITACAIN [Concomitant]
     Indication: PAIN
     Route: 065
  8. XYLOCAINE [Concomitant]
     Route: 065
  9. HYPEN [Concomitant]
     Indication: PAIN
     Route: 048
  10. GASMOTIN [Concomitant]
     Indication: PROPHYLAXIS
     Route: 048
  11. FLURBIPROFEN [Concomitant]
     Route: 042
  12. FLURBIPROFEN [Concomitant]
     Indication: PAIN
     Route: 042
  13. NEUROTROPIN [Concomitant]
     Route: 048
  14. ROPIVACAINE HYDROCHLORIDE [Concomitant]
     Route: 065
  15. CALONAL [Concomitant]
     Route: 048
  16. XYLOCAINE [Concomitant]
     Indication: PAIN
     Route: 065
  17. ROPIVACAINE HYDROCHLORIDE [Concomitant]
     Indication: PAIN
     Route: 065
  18. DUROTEP MT [Suspect]
     Indication: PAIN
     Route: 062
  19. MEXITIL [Concomitant]
     Indication: PAIN
     Route: 048
  20. NEUROTROPIN [Concomitant]
     Route: 048

REACTIONS (1)
  - DRUG PRESCRIBING ERROR [None]
